FAERS Safety Report 6159139-5 (Version None)
Quarter: 2009Q2

REPORT INFORMATION
  Report Type: 
  Country: None (occurrence: None)
  Receive Date: 20090415
  Receipt Date: 20090407
  Transmission Date: 20091009
  Serious: Yes (Death)
  Sender: FDA-Public Use
  Company Number: US025602

PATIENT
  Age: 35 Year
  Sex: Male

DRUGS (1)
  1. ACTIQ [Suspect]
     Indication: HEADACHE
     Dosage: BU

REACTIONS (3)
  - OVERDOSE [None]
  - RESPIRATORY ARREST [None]
  - SELF-MEDICATION [None]
